FAERS Safety Report 11783484 (Version 2)
Quarter: 2015Q4

REPORT INFORMATION
  Report Type: Spontaneous
  Country: GB (occurrence: GB)
  Receive Date: 20151127
  Receipt Date: 20151127
  Transmission Date: 20160305
  Serious: Yes (Other)
  Sender: FDA-Public Use
  Company Number: GB-LABORATOIRE HRA PHARMA-1044702

PATIENT
  Age: 30 Year
  Sex: Female

DRUGS (1)
  1. ELLA [Suspect]
     Active Substance: ULIPRISTAL ACETATE
     Route: 048
     Dates: start: 20150617, end: 20150617

REACTIONS (2)
  - Abortion spontaneous [None]
  - Unintended pregnancy [None]

NARRATIVE: CASE EVENT DATE: 20150817
